FAERS Safety Report 7572135-6 (Version None)
Quarter: 2011Q2

REPORT INFORMATION
  Report Type: 
  Country: None (occurrence: None)
  Receive Date: 20110624
  Receipt Date: 20110621
  Transmission Date: 20111010
  Serious: Yes (Hospitalization)
  Sender: FDA-Public Use
  Company Number: NZ-CEPHALON-2011003219

PATIENT
  Sex: Female
  Weight: 85 kg

DRUGS (6)
  1. SYMBICORT [Concomitant]
  2. LEVOTHYROXINE SODIUM [Concomitant]
  3. RITUXIMAB [Suspect]
     Indication: B-CELL LYMPHOMA
     Route: 042
     Dates: start: 20110525
  4. BENDAMUSTINE HCL [Suspect]
     Indication: B-CELL LYMPHOMA
     Route: 042
     Dates: start: 20110526
  5. ACETAMINOPHEN [Concomitant]
  6. MELOXICAM [Concomitant]

REACTIONS (1)
  - VIRAL INFECTION [None]
